FAERS Safety Report 8150116-1 (Version None)
Quarter: 2012Q1

REPORT INFORMATION
  Report Type: 
  Country: None (occurrence: None)
  Receive Date: 20120220
  Receipt Date: 20120209
  Transmission Date: 20120608
  Serious: Yes (Hospitalization)
  Sender: FDA-Public Use
  Company Number: BR-BIOGENIDEC-2010BI006281

PATIENT
  Age: 43 Year
  Sex: Female

DRUGS (1)
  1. AVONEX [Suspect]
     Indication: MULTIPLE SCLEROSIS
     Route: 030
     Dates: start: 20090610, end: 20100601

REACTIONS (9)
  - VOMITING [None]
  - NAUSEA [None]
  - MALAISE [None]
  - DRUG INEFFECTIVE [None]
  - ABDOMINAL DISCOMFORT [None]
  - PAIN [None]
  - GALLBLADDER DISORDER [None]
  - MULTIPLE SCLEROSIS RELAPSE [None]
  - INFLUENZA LIKE ILLNESS [None]
